FAERS Safety Report 10459471 (Version 2)
Quarter: 2014Q4

REPORT INFORMATION
  Report Type: Spontaneous
  Country: IT (occurrence: IT)
  Receive Date: 20140917
  Receipt Date: 20141223
  Transmission Date: 20150528
  Serious: Yes (Other)
  Sender: FDA-Public Use
  Company Number: IT-TEVA-508736ISR

PATIENT
  Age: 55 Year
  Sex: Male
  Weight: 77 kg

DRUGS (3)
  1. ERBITUX [Suspect]
     Active Substance: CETUXIMAB
     Indication: LARYNGEAL CANCER METASTATIC
     Route: 042
     Dates: start: 20140417, end: 20140605
  2. CISPLATINO TEVA ITALIA [Suspect]
     Active Substance: CISPLATIN
     Indication: LARYNGEAL CANCER METASTATIC
     Route: 042
     Dates: start: 20140417, end: 20140605
  3. FLUORURACILE AHCL [Suspect]
     Active Substance: FLUOROURACIL
     Indication: LARYNGEAL CANCER METASTATIC
     Route: 042
     Dates: start: 20140417, end: 20140605

REACTIONS (3)
  - Diarrhoea [Recovered/Resolved]
  - Stomatitis [Recovered/Resolved]
  - Hypokalaemia [Recovered/Resolved]

NARRATIVE: CASE EVENT DATE: 20140608
